FAERS Safety Report 6101480-6 (Version None)
Quarter: 2009Q1

REPORT INFORMATION
  Report Type: 
  Country: None (occurrence: None)
  Receive Date: 20090303
  Receipt Date: 20090303
  Transmission Date: 20090719
  Serious: Yes (Other)
  Sender: FDA-Public Use
  Company Number: None

PATIENT
  Age: 29 Year
  Sex: Female
  Weight: 56.6996 kg

DRUGS (1)
  1. CHANTIX [Suspect]
     Indication: SMOKING CESSATION THERAPY
     Dosage: TWICE DAILY PO
     Route: 048
     Dates: start: 20080901, end: 20081015

REACTIONS (6)
  - ANXIETY [None]
  - DEPRESSION [None]
  - GENERALISED ANXIETY DISORDER [None]
  - MANIA [None]
  - RASH [None]
  - SUICIDAL IDEATION [None]
